FAERS Safety Report 17146079 (Version 2)
Quarter: 2019Q4

REPORT INFORMATION
  Report Type: Report from Study
  Country: US (occurrence: US)
  Receive Date: 20191212
  Receipt Date: 20191220
  Transmission Date: 20200122
  Serious: No
  Sender: FDA-Public Use
  Company Number: NVSC2019US066252

PATIENT
  Sex: Female

DRUGS (1)
  1. ENTRESTO [Suspect]
     Active Substance: SACUBITRIL\VALSARTAN
     Indication: PATERNAL EXPOSURE DURING PREGNANCY
     Dosage: FETAL EXPOSURE VIA PARTNER
     Route: 050

REACTIONS (1)
  - Exposure via partner [Unknown]
